FAERS Safety Report 11071404 (Version 2)
Quarter: 2015Q2

REPORT INFORMATION
  Report Type: Spontaneous
  Country: JP (occurrence: None)
  Receive Date: 20150424
  Receipt Date: 20150615
  Transmission Date: 20150821
  Serious: Yes (Hospitalization)
  Sender: FDA-Public Use
  Company Number: ABR_02166_2015

PATIENT
  Age: 54 Year
  Sex: Female

DRUGS (1)
  1. GLIADEL [Suspect]
     Active Substance: CARMUSTINE
     Indication: GLIOBLASTOMA
     Dosage: INTRACEREBRAL

REACTIONS (2)
  - Cerebral infarction [None]
  - Cerebral artery stenosis [None]

NARRATIVE: CASE EVENT DATE: 20150407
